FAERS Safety Report 6276723-9 (Version None)
Quarter: 2009Q3

REPORT INFORMATION
  Report Type: 
  Country: None (occurrence: None)
  Receive Date: 20090722
  Receipt Date: 20080729
  Transmission Date: 20100115
  Serious: Yes (Other)
  Sender: FDA-Public Use
  Company Number: US-BRISTOL-MYERS SQUIBB COMPANY-14283436

PATIENT
  Age: 34 Year
  Sex: Male

DRUGS (1)
  1. COUMADIN [Suspect]
     Dosage: TAKING FOR 2 YEARS.

REACTIONS (3)
  - ABORTION SPONTANEOUS [None]
  - PATERNAL DRUGS AFFECTING FOETUS [None]
  - PREGNANCY [None]
